FAERS Safety Report 4990312-5 (Version None)
Quarter: 2006Q2

REPORT INFORMATION
  Report Type: 
  Country: None (occurrence: None)
  Receive Date: 20060503
  Receipt Date: 20060424
  Transmission Date: 20061013
  Serious: Yes (Death, Hospitalization, Other)
  Sender: FDA-Public Use
  Company Number: US-BRISTOL-MYERS SQUIBB COMPANY-13355052

PATIENT
  Age: 38 Year
  Sex: Male

DRUGS (4)
  1. ABILIFY [Suspect]
  2. ZYPREXA [Suspect]
  3. GABITRIL [Concomitant]
  4. PAXIL [Concomitant]

REACTIONS (3)
  - CLAVICLE FRACTURE [None]
  - COMPLETED SUICIDE [None]
  - HALLUCINATION [None]
